FAERS Safety Report 21472891 (Version 1)
Quarter: 2022Q4

REPORT INFORMATION
  Report Type: Report from Study
  Country: US (occurrence: US)
  Receive Date: 20221018
  Receipt Date: 20221018
  Transmission Date: 20230113
  Serious: No
  Sender: FDA-Public Use
  Company Number: US-ABBVIE-4152741

PATIENT
  Sex: Male

DRUGS (10)
  1. IMBRUVICA [Suspect]
     Active Substance: IBRUTINIB
     Indication: Waldenstrom^s macroglobulinaemia
     Route: 048
     Dates: start: 20220307
  2. Suboxone Sublingual Film 4-1 MG [Concomitant]
     Indication: Product used for unknown indication
  3. Adderall Oral Tablet 10 MG [Concomitant]
     Indication: Product used for unknown indication
  4. Valium Oral Tablet 10 MG [Concomitant]
     Indication: Product used for unknown indication
  5. Zofran Oral Tablet 4 MG [Concomitant]
     Indication: Product used for unknown indication
  6. Bentyl Oral Capsule 10 MG [Concomitant]
     Indication: Product used for unknown indication
  7. FUROSEMIDE [Concomitant]
     Active Substance: FUROSEMIDE
     Indication: Product used for unknown indication
     Route: 048
  8. LACTULOSE [Concomitant]
     Active Substance: LACTULOSE
     Indication: Product used for unknown indication
     Dosage: 10GM/15ML
     Route: 048
  9. MiraLax Oral Packet 17 GM [Concomitant]
     Indication: Product used for unknown indication
  10. METOPROLOL SUCCINATE [Concomitant]
     Active Substance: METOPROLOL SUCCINATE
     Indication: Product used for unknown indication
     Route: 048

REACTIONS (3)
  - Pyrexia [Unknown]
  - Toothache [Unknown]
  - Tooth infection [Unknown]
